FAERS Safety Report 4909846-4 (Version None)
Quarter: 2006Q1

REPORT INFORMATION
  Report Type: 
  Country: None (occurrence: None)
  Receive Date: 20060213
  Receipt Date: 20060206
  Transmission Date: 20060701
  Serious: Yes (Other)
  Sender: FDA-Public Use
  Company Number: PHNU2006DE00826

PATIENT
  Age: 50 Year
  Sex: Female

DRUGS (5)
  1. NEBILET [Suspect]
     Dates: start: 20051201
  2. LIDOCAINE [Concomitant]
     Dates: start: 20060101, end: 20060101
  3. HYDROCHLOROTHIAZIDE [Concomitant]
  4. HORMONES [Concomitant]
  5. DIOVAN [Suspect]
     Dates: start: 20051201

REACTIONS (2)
  - EPISTAXIS [None]
  - VAGINAL HAEMORRHAGE [None]
